FAERS Safety Report 6135318-8 (Version None)
Quarter: 2009Q1

REPORT INFORMATION
  Report Type: 
  Country: None (occurrence: None)
  Receive Date: 20090327
  Receipt Date: 20081209
  Transmission Date: 20090719
  Serious: No
  Sender: FDA-Public Use
  Company Number: US-BRISTOL-MYERS SQUIBB COMPANY-14436166

PATIENT
  Age: 61 Year
  Sex: Male
  Weight: 113 kg

DRUGS (5)
  1. SPRYCEL [Suspect]
     Indication: CHRONIC MYELOID LEUKAEMIA
     Dosage: FIRST RECEIVED 140MG/DY, ABOUT 2 YRS BACK.
  2. TOPROL-XL [Concomitant]
  3. LISINOPRIL [Concomitant]
  4. HYDROCHLOROTHIAZIDE [Concomitant]
  5. DAYPRO [Concomitant]

REACTIONS (2)
  - DYSPHASIA [None]
  - HYPOACUSIS [None]
